FAERS Safety Report 18410437 (Version 6)
Quarter: 2020Q4

REPORT INFORMATION
  Report Type: Spontaneous
  Country: US (occurrence: US)
  Receive Date: 20201021
  Receipt Date: 20201112
  Transmission Date: 20210114
  Serious: Yes (Other)
  Sender: FDA-Public Use
  Company Number: US-AMGEN-USASP2020165862

PATIENT
  Age: 13 Year
  Sex: Male
  Weight: 21 kg

DRUGS (2)
  1. EPOGEN [Suspect]
     Active Substance: ERYTHROPOIETIN
     Indication: NEPHROGENIC ANAEMIA
     Dosage: 7000 UNIT, 3 TIMES/WK (MONDAYS, WEDNESDAYS AND FRIDAYS)
     Route: 058
  2. EPOGEN [Suspect]
     Active Substance: ERYTHROPOIETIN
     Dosage: 6000 UNIT, 3 TIMES/WK
     Route: 058

REACTIONS (2)
  - Aplasia pure red cell [Unknown]
  - Treatment failure [Unknown]

NARRATIVE: CASE EVENT DATE: 20200505
